FAERS Safety Report 7259177-5 (Version None)
Quarter: 2011Q1

REPORT INFORMATION
  Report Type: 
  Country: None (occurrence: None)
  Receive Date: 20110129
  Receipt Date: 20100720
  Transmission Date: 20110831
  Serious: No
  Sender: FDA-Public Use
  Company Number: US-ABBOTT-10P-163-0653589-00

PATIENT
  Age: 52 Year
  Sex: Female

DRUGS (6)
  1. ADVAIR [Concomitant]
     Indication: ASTHMA
  2. HUMIRA [Suspect]
     Indication: PSORIATIC ARTHROPATHY
     Dates: start: 20090101
  3. LISINOPRIL [Concomitant]
     Indication: HYPERTENSION
     Dosage: 10/12.5MG
  4. FOLIC ACID [Concomitant]
     Indication: PRODUCT USED FOR UNKNOWN INDICATION
     Dosage: TO TAKE WITH METHOTREXATE
  5. METHOTREXATE [Concomitant]
     Indication: PRODUCT USED FOR UNKNOWN INDICATION
     Dosage: TO GO WITH HUMIRA
  6. TOPROL-XL [Concomitant]
     Indication: HYPERTENSION

REACTIONS (1)
  - WRONG TECHNIQUE IN DRUG USAGE PROCESS [None]
